FAERS Safety Report 7273932 (Version 2)
Quarter: 2020Q3

REPORT INFORMATION
  Report Type: Report from Study
  Country: KR (occurrence: KR)
  Receive Date: 20100209
  Receipt Date: 20100216
  Transmission Date: 20201104
  Serious: Yes (Hospitalization)
  Sender: FDA-Public Use
  Company Number: KR-WYE-H13304710

PATIENT
  Age: 35 Year
  Sex: Female
  Weight: 101.6 kg

DRUGS (6)
  1. INTERFERON ALFA NOS [Suspect]
     Active Substance: INTERFERON ALFA-2A OR INTERFERON ALFA-2B
     Indication: RENAL CELL CARCINOMA
     Dosage: 9 MILLION UNITS 3 XWK
     Route: 058
     Dates: start: 20100113, end: 20100126
  2. CARBAMAZEPINE. [Concomitant]
     Active Substance: CARBAMAZEPINE
     Indication: PROPHYLAXIS
     Dosage: NOT PROVIDED
     Route: 065
     Dates: start: 20100113
  3. POVIDONE?IODINE. [Concomitant]
     Active Substance: POVIDONE-IODINE
     Indication: PROPHYLAXIS
     Dosage: NOT PROVIDED
     Route: 065
     Dates: start: 20100113
  4. ACETAMINOPHEN. [Concomitant]
     Active Substance: ACETAMINOPHEN
     Indication: PREMEDICATION
     Dosage: PREMEDICATION  FOR INTERFERON ALFA
     Route: 065
     Dates: start: 20100113
  5. BENZYDAMINE [Concomitant]
     Active Substance: BENZYDAMINE
     Indication: PROPHYLAXIS
     Dosage: NOT PROVIDED
     Route: 065
     Dates: start: 20100113
  6. BEVACIZUMAB. [Suspect]
     Active Substance: BEVACIZUMAB
     Indication: RENAL CELL CARCINOMA
     Dosage: 545 MG/ML EVERY 2 WK;  CUMULATIVE DOSE TO EVENT: 545 MG/ML
     Route: 042
     Dates: start: 20100113, end: 20100126

REACTIONS (2)
  - Anal abscess [Recovered/Resolved]
  - Blood pressure diastolic increased [None]

NARRATIVE: CASE EVENT DATE: 20100130
